FAERS Safety Report 4354068-1 (Version None)
Quarter: 2004Q2

REPORT INFORMATION
  Report Type: 
  Country: None (occurrence: None)
  Receive Date: 20040503
  Receipt Date: 20040421
  Transmission Date: 20050107
  Serious: Yes (Hospitalization)
  Sender: FDA-Public Use
  Company Number: NSADSS2003007900

PATIENT
  Age: 6 Year
  Sex: Male

DRUGS (4)
  1. INFLIXIMAB, RECOMBINANT (INFLIXIMAB, RECOMBINANT) LYOPHILIZED POWDER [Suspect]
     Indication: JUVENILE ARTHRITIS
     Dosage: 3 MG/KG, INTRAVENOUS DRIP
     Route: 041
     Dates: start: 20030108
  2. INFLIXIMAB, RECOMBINANT (INFLIXIMAB, RECOMBINANT) LYOPHILIZED POWDER [Suspect]
     Indication: JUVENILE ARTHRITIS
     Dosage: 3 MG/KG, INTRAVENOUS DRIP
     Route: 041
     Dates: start: 20030217
  3. INFLIXIMAB, RECOMBINANT (INFLIXIMAB, RECOMBINANT) LYOPHILIZED POWDER [Suspect]
     Indication: JUVENILE ARTHRITIS
     Dosage: 3 MG/KG, INTRAVENOUS DRIP
     Route: 041
     Dates: start: 20030417
  4. METHOTREXATE [Concomitant]

REACTIONS (4)
  - BODY TEMPERATURE INCREASED [None]
  - DIFFICULTY IN WALKING [None]
  - DIPLOPIA [None]
  - DIZZINESS [None]
